FAERS Safety Report 16481589 (Version 6)
Quarter: 2020Q3

REPORT INFORMATION
  Report Type: Spontaneous
  Country: US (occurrence: US)
  Receive Date: 20190627
  Receipt Date: 20200825
  Transmission Date: 20201102
  Serious: Yes (Other)
  Sender: FDA-Public Use
  Company Number: US-BRISTOL-MYERS SQUIBB COMPANY-BMS-2019-062602

PATIENT
  Sex: Female
  Weight: 72.57 kg

DRUGS (6)
  1. SYNTHROID [Concomitant]
     Active Substance: LEVOTHYROXINE SODIUM
     Indication: PRODUCT USED FOR UNKNOWN INDICATION
     Dosage: 100 MICROGRAM, QD
     Route: 065
  2. ELIQUIS [Suspect]
     Active Substance: APIXABAN
     Indication: CEREBROVASCULAR ACCIDENT PROPHYLAXIS
     Dosage: 5 MILLIGRAM, BID
     Route: 048
     Dates: start: 20190604
  3. PRILOSEC [Suspect]
     Active Substance: OMEPRAZOLE MAGNESIUM
     Indication: PRODUCT USED FOR UNKNOWN INDICATION
     Dosage: AS NEEDED
     Route: 065
  4. VIT D [Concomitant]
     Active Substance: VITAMIN D NOS
     Indication: PRODUCT USED FOR UNKNOWN INDICATION
     Dosage: UNK
     Route: 065
  5. CLARITIN [Suspect]
     Active Substance: LORATADINE
     Indication: PRODUCT USED FOR UNKNOWN INDICATION
     Dosage: AS NEEDED
     Route: 065
  6. MAGNESIUM [Concomitant]
     Active Substance: MAGNESIUM
     Indication: PRODUCT USED FOR UNKNOWN INDICATION
     Dosage: UNK
     Route: 065

REACTIONS (26)
  - Middle insomnia [Unknown]
  - Insomnia [Unknown]
  - Platelet count decreased [Unknown]
  - Balance disorder [Unknown]
  - Blood glucose decreased [Unknown]
  - Body height decreased [Unknown]
  - Blood pressure fluctuation [Unknown]
  - Pruritus [Unknown]
  - Anxiety [Unknown]
  - Asthenia [Unknown]
  - Dizziness [Unknown]
  - Muscle spasms [Unknown]
  - Drug ineffective [Unknown]
  - Fatigue [Unknown]
  - Hypoaesthesia [Unknown]
  - Gallbladder disorder [Unknown]
  - Chest discomfort [Unknown]
  - Pain in extremity [Unknown]
  - Feeling cold [Unknown]
  - Pain [Unknown]
  - Thyroid disorder [Unknown]
  - Peripheral coldness [Unknown]
  - Arthralgia [Unknown]
  - Feeling abnormal [Unknown]
  - Chills [Unknown]
  - Gait disturbance [Unknown]

NARRATIVE: CASE EVENT DATE: 2019
